FAERS Safety Report 9503337 (Version 3)
Quarter: 2013Q3

REPORT INFORMATION
  Report Type: Spontaneous
  Country: JP (occurrence: JP)
  Receive Date: 20130906
  Receipt Date: 20130911
  Transmission Date: 20140515
  Serious: Yes (Hospitalization)
  Sender: FDA-Public Use
  Company Number: JP-PFIZER INC-2013252439

PATIENT
  Age: 54 Year
  Sex: Male

DRUGS (12)
  1. RHEUMATREX [Suspect]
     Indication: RHEUMATOID ARTHRITIS
     Dosage: 4 MG
     Route: 048
     Dates: start: 20130815
  2. AZULFIDINE EN [Suspect]
     Indication: RHEUMATOID ARTHRITIS
     Dosage: 500 MG, 2X/DAY
     Route: 048
  3. ANCARON [Suspect]
     Dosage: 100 MG, 1X/DAY
     Route: 048
  4. DIART [Concomitant]
     Dosage: 60 MG, 1X/DAY
     Route: 048
  5. MICARDIS [Concomitant]
     Dosage: 40 MG, 1X/DAY
     Route: 048
  6. ARTIST [Concomitant]
     Dosage: 10 MG, 1X/DAY
     Route: 048
  7. WARFARIN [Concomitant]
     Dosage: 1 MG, 3X/DAY
     Route: 048
  8. CRESTOR [Concomitant]
     Dosage: 2.5 MG, 1X/DAY
     Route: 048
  9. ZYLORIC [Concomitant]
     Dosage: 100 MG, 2X/DAY
     Route: 048
  10. AMARYL [Concomitant]
     Dosage: 0.5 MG, 1X/DAY
     Route: 048
  11. SEIBULE [Concomitant]
     Dosage: 50 MG, 3X/DAY
     Route: 048
  12. EQUA [Concomitant]
     Dosage: 50 MG, 1X/DAY
     Route: 048

REACTIONS (1)
  - Lung disorder [Unknown]
